FAERS Safety Report 8925321 (Version 1)
Quarter: 2012Q4

REPORT INFORMATION
  Report Type: 
  Country: US (occurrence: US)
  Receive Date: 20121126
  Receipt Date: 20121126
  Transmission Date: 20130627
  Serious: Yes (Other)
  Sender: FDA-Public Use
  Company Number: US-BAYER-2012-121971

PATIENT
  Age: 78 Year
  Sex: Female
  Weight: 74 kg

DRUGS (4)
  1. BAYER CHEWABLE LOW DOSE BABY ASPIRIN TABLET ORANGE [Suspect]
     Indication: MYOCARDIAL INFARCT PROPHYLAXIS
  2. ALKA-SELTZER ORIGINAL [Suspect]
     Indication: HEADACHE
     Dosage: 2 DF, PRN
     Route: 048
     Dates: end: 20121119
  3. UNITHROID [Concomitant]
  4. LISINOPRIL [Concomitant]

REACTIONS (3)
  - Haemorrhagic diathesis [Recovered/Resolved]
  - Abdominal pain upper [None]
  - Procedural haemorrhage [None]
